FAERS Safety Report 5246581-X (Version None)
Quarter: 2007Q1

REPORT INFORMATION
  Report Type: 
  Country: None (occurrence: None)
  Receive Date: 20070226
  Receipt Date: 20070205
  Transmission Date: 20070707
  Serious: Yes (Other)
  Sender: FDA-Public Use
  Company Number: 2007CG00284

PATIENT
  Age: 476 Month
  Sex: Female

DRUGS (7)
  1. OMEPRAZOLE [Suspect]
     Route: 048
  2. ETHINYL ESTRADIOL AND LEVONORGESTREL [Interacting]
     Indication: CONTRACEPTION
     Route: 048
     Dates: end: 20060101
  3. ENBREL [Interacting]
     Indication: ANKYLOSING SPONDYLITIS
     Route: 058
     Dates: start: 20060807, end: 20061023
  4. RIFINAH [Interacting]
     Indication: TUBERCULOSIS SKIN TEST POSITIVE
  5. LEXOMIL [Interacting]
     Route: 048
  6. LEVOTHYROXINE SODIUM [Interacting]
     Indication: THYROIDITIS
     Route: 048
     Dates: end: 20060101
  7. BUTAZOLIDIN [Interacting]
     Dates: end: 20060101

REACTIONS (3)
  - DRUG EXPOSURE DURING PREGNANCY [None]
  - DRUG INTERACTION [None]
  - UNINTENDED PREGNANCY [None]
